FAERS Safety Report 9106946 (Version 5)
Quarter: 2014Q1

REPORT INFORMATION
  Report Type: Report from Study
  Country: AU (occurrence: AU)
  Receive Date: 20130221
  Receipt Date: 20140117
  Transmission Date: 20141002
  Serious: Yes (Hospitalization)
  Sender: FDA-Public Use
  Company Number: AU-MILLENNIUM PHARMACEUTICALS, INC.-2013-00766

PATIENT
  Sex: 0

DRUGS (22)
  1. VELCADE [Suspect]
     Indication: PLASMA CELL MYELOMA
     Dosage: 2.5 MG, UNK
     Route: 042
     Dates: start: 20121116, end: 20130121
  2. CYCLOPHOSPHAMIDE [Suspect]
     Indication: PLASMA CELL MYELOMA
     Dosage: 550 MG, UNK
     Route: 065
     Dates: end: 20130118
  3. DEXAMETHASONE [Suspect]
     Indication: PLASMA CELL MYELOMA
     Dosage: 20 MG, UNK
     Route: 065
     Dates: start: 20121116, end: 20130122
  4. FAMCICLOVIR [Concomitant]
     Indication: ANTIVIRAL PROPHYLAXIS
     Dosage: UNK
     Dates: start: 20121119, end: 20130204
  5. AMOXYCILLIN                        /00249601/ [Concomitant]
     Indication: RESPIRATORY TRACT INFECTION
     Dosage: UNK
     Dates: start: 20121228, end: 20121231
  6. GENTAMYCIN-MP [Concomitant]
     Indication: RESPIRATORY TRACT INFECTION
     Dosage: UNK
     Dates: start: 20121228, end: 20121228
  7. AZITHROMYCIN [Concomitant]
     Indication: RESPIRATORY TRACT INFECTION
     Dosage: UNK
     Dates: start: 20121228, end: 20121230
  8. PARACETAMOL [Concomitant]
     Indication: RESPIRATORY TRACT INFECTION
     Dosage: UNK
     Dates: start: 20121228, end: 20121231
  9. PARACETAMOL [Concomitant]
     Indication: DYSPNOEA
     Dosage: UNK
     Dates: start: 20130124, end: 20130124
  10. PARACETAMOL [Concomitant]
     Indication: MALAISE
  11. FENTANYL [Concomitant]
     Indication: BACK PAIN
     Dosage: UNK
     Dates: start: 20121214, end: 20130114
  12. AUGMENTIN DUO [Concomitant]
     Indication: RESPIRATORY TRACT INFECTION
     Dosage: UNK
     Dates: start: 20121228, end: 20130101
  13. TAZOCIN [Concomitant]
     Indication: BACILLUS INFECTION
     Dosage: UNK
     Dates: start: 20121230, end: 20130104
  14. PANADOL OSTEO [Concomitant]
     Indication: BACK PAIN
     Dosage: UNK
     Dates: start: 20121214, end: 20121221
  15. OXYCODONE [Concomitant]
     Indication: BACK PAIN
     Dosage: UNK
     Dates: start: 20121214, end: 20121218
  16. METRONIDAZOLE [Concomitant]
     Indication: BACILLUS INFECTION
     Dosage: UNK
     Dates: start: 20121230, end: 20130118
  17. CLARITHROMYCIN [Concomitant]
     Indication: BACILLUS INFECTION
     Dosage: UNK
     Dates: start: 20121230, end: 20130122
  18. ATACAND [Concomitant]
     Indication: HYPERTENSION
     Dosage: UNK
     Dates: start: 20130115, end: 20130125
  19. ATACAND [Concomitant]
     Dosage: UNK
     Dates: start: 2009, end: 20121213
  20. RECTOGESIC [Concomitant]
     Indication: ANAL FISSURE
     Dosage: UNK
     Dates: start: 20121113, end: 20130115
  21. MOVICOL                            /01053601/ [Concomitant]
     Indication: ANAL FISSURE
     Dosage: UNK
     Dates: start: 20121113, end: 20130103
  22. PANTOPRAZOLE [Concomitant]
     Indication: GASTROOESOPHAGEAL REFLUX DISEASE
     Dosage: UNK
     Dates: start: 20130124, end: 20130125

REACTIONS (1)
  - Cytomegalovirus test positive [Recovered/Resolved]
